FAERS Safety Report 5939045-9 (Version None)
Quarter: 2008Q4

REPORT INFORMATION
  Report Type: 
  Country: None (occurrence: None)
  Receive Date: 20081103
  Receipt Date: 20081031
  Transmission Date: 20090506
  Serious: Yes (Death, Hospitalization)
  Sender: FDA-Public Use
  Company Number: JP-SANOFI-SYNTHELABO-F01200801680

PATIENT
  Sex: Male

DRUGS (7)
  1. AMARYL [Concomitant]
     Dates: start: 20070714
  2. GLUCOBAY [Concomitant]
     Dates: start: 20070717
  3. BASEN [Concomitant]
     Dates: end: 20070721
  4. BEVACIZUMAB [Suspect]
     Dosage: 5 MG/KG
     Route: 041
  5. LEUCOVORIN CALCIUM [Suspect]
     Dosage: 100 MG/M2
     Route: 041
  6. FLUOROURACIL [Suspect]
     Dosage: 400 MG/M2
     Route: 041
  7. ELPLAT [Suspect]
     Indication: COLON CANCER METASTATIC
     Dosage: 85 MG/M2
     Route: 041

REACTIONS (3)
  - ASCITES [None]
  - CENTRAL LINE INFECTION [None]
  - DISEASE PROGRESSION [None]
